FAERS Safety Report 9646289 (Version 1)
Quarter: 2013Q4

REPORT INFORMATION
  Report Type: Spontaneous
  Country: TR (occurrence: TR)
  Receive Date: 20131025
  Receipt Date: 20131025
  Transmission Date: 20140711
  Serious: Yes (Life-Threatening, Hospitalization)
  Sender: FDA-Public Use
  Company Number: TR-MYLANLABS-2013S1023287

PATIENT
  Age: 18 Year
  Sex: Female

DRUGS (2)
  1. PROPAFENONE [Suspect]
     Indication: INTENTIONAL OVERDOSE
     Dosage: 30 X 300MG
     Route: 048
  2. CAPTOPRIL [Suspect]
     Indication: INTENTIONAL OVERDOSE
     Dosage: 20 X 50MG
     Route: 048

REACTIONS (6)
  - Ventricular arrhythmia [Recovered/Resolved]
  - Electrocardiogram QRS complex prolonged [Recovered/Resolved]
  - Cardiac arrest [Recovered/Resolved]
  - Haemodynamic instability [Recovered/Resolved]
  - Toxicity to various agents [Recovered/Resolved]
  - Intentional overdose [Recovered/Resolved]
